FAERS Safety Report 25339961 (Version 2)
Quarter: 2025Q2

REPORT INFORMATION
  Report Type: Spontaneous
  Country: IN (occurrence: IN)
  Receive Date: 20250521
  Receipt Date: 20250530
  Transmission Date: 20250716
  Serious: Yes (Hospitalization, Other)
  Sender: RANBAXY
  Company Number: IN-SUN PHARMACEUTICAL INDUSTRIES LTD-2025R1-507538

PATIENT
  Age: 33 Year
  Sex: Male

DRUGS (21)
  1. OLANZAPINE [Suspect]
     Active Substance: OLANZAPINE
     Indication: Aggression
     Route: 065
  2. OLANZAPINE [Suspect]
     Active Substance: OLANZAPINE
     Indication: Logorrhoea
  3. OLANZAPINE [Suspect]
     Active Substance: OLANZAPINE
     Indication: Aggression
  4. OLANZAPINE [Suspect]
     Active Substance: OLANZAPINE
     Indication: Psychomotor hyperactivity
  5. OLANZAPINE [Suspect]
     Active Substance: OLANZAPINE
     Indication: Delusion
  6. OLANZAPINE [Suspect]
     Active Substance: OLANZAPINE
     Indication: Hallucination, auditory
  7. OLANZAPINE [Suspect]
     Active Substance: OLANZAPINE
     Indication: Judgement impaired
  8. TOPIRAMATE [Suspect]
     Active Substance: TOPIRAMATE
     Indication: Aggression
     Route: 065
  9. TOPIRAMATE [Suspect]
     Active Substance: TOPIRAMATE
     Indication: Logorrhoea
  10. TOPIRAMATE [Suspect]
     Active Substance: TOPIRAMATE
     Indication: Aggression
  11. TOPIRAMATE [Suspect]
     Active Substance: TOPIRAMATE
     Indication: Psychomotor hyperactivity
  12. TOPIRAMATE [Suspect]
     Active Substance: TOPIRAMATE
     Indication: Delusion
  13. TOPIRAMATE [Suspect]
     Active Substance: TOPIRAMATE
     Indication: Judgement impaired
  14. TOPIRAMATE [Suspect]
     Active Substance: TOPIRAMATE
     Indication: Hallucination, auditory
  15. VALPROIC ACID [Suspect]
     Active Substance: VALPROIC ACID
     Indication: Aggression
     Route: 065
  16. VALPROIC ACID [Suspect]
     Active Substance: VALPROIC ACID
     Indication: Logorrhoea
  17. VALPROIC ACID [Suspect]
     Active Substance: VALPROIC ACID
     Indication: Aggression
  18. VALPROIC ACID [Suspect]
     Active Substance: VALPROIC ACID
     Indication: Psychomotor hyperactivity
  19. VALPROIC ACID [Suspect]
     Active Substance: VALPROIC ACID
     Indication: Delusion
  20. VALPROIC ACID [Suspect]
     Active Substance: VALPROIC ACID
     Indication: Hallucination, auditory
  21. VALPROIC ACID [Suspect]
     Active Substance: VALPROIC ACID
     Indication: Judgement impaired

REACTIONS (1)
  - Stevens-Johnson syndrome [Unknown]
